FAERS Safety Report 14797693 (Version 5)
Quarter: 2019Q2

REPORT INFORMATION
  Report Type: Report from Study
  Country: DE (occurrence: DE)
  Receive Date: 20180424
  Receipt Date: 20190410
  Transmission Date: 20190711
  Serious: Yes (Hospitalization, Other)
  Sender: FDA-Public Use
  Company Number: DE-TEVA-2018-DE-884482

PATIENT
  Age: 76 Year
  Sex: Female
  Weight: 95 kg

DRUGS (3)
  1. POMALIDOMID [Suspect]
     Active Substance: POMALIDOMIDE
     Dosage: 3 MILLIGRAM DAILY;
     Route: 048
     Dates: start: 20150813
  2. DEXAMETHASONE. [Suspect]
     Active Substance: DEXAMETHASONE
     Indication: PLASMA CELL MYELOMA
     Route: 048
  3. POMALIDOMID [Suspect]
     Active Substance: POMALIDOMIDE
     Indication: PLASMA CELL MYELOMA
     Dosage: 3 MILLIGRAM DAILY;
     Route: 048
     Dates: start: 20150707, end: 20150723

REACTIONS (3)
  - Leukopenia [Recovered/Resolved]
  - Leukopenia [Recovered/Resolved]
  - Thrombocytopenia [Recovered/Resolved]

NARRATIVE: CASE EVENT DATE: 20150716
